FAERS Safety Report 7938455-8 (Version None)
Quarter: 2011Q4

REPORT INFORMATION
  Report Type: 
  Country: None (occurrence: None)
  Receive Date: 20111123
  Receipt Date: 20111112
  Transmission Date: 20120403
  Serious: No
  Sender: FDA-Public Use
  Company Number: US-B.I. PHARMACEUTICALS,INC./RIDGEFIELD-2011-BP-26140BP

PATIENT
  Sex: Female

DRUGS (7)
  1. ZANTAC 75 [Suspect]
  2. ZANTAC 75 [Suspect]
     Indication: DYSPEPSIA
     Dosage: 150 MG
     Route: 048
     Dates: start: 20111104
  3. FLUTICASONE PROPIONATE [Suspect]
     Indication: HYPERSENSITIVITY
     Dates: start: 20111104
  4. LEVOTHYROXINE SODIUM [Concomitant]
     Indication: HYPOTHYROIDISM
  5. BIOIDENTICAL HORMONE [Concomitant]
     Indication: HORMONE REPLACEMENT THERAPY
  6. VITAMIN TAB [Concomitant]
     Indication: SUPPLEMENTATION THERAPY
  7. CLARITIN [Suspect]
     Indication: HYPERSENSITIVITY
     Dates: start: 20111104

REACTIONS (3)
  - FLATULENCE [None]
  - DRY MOUTH [None]
  - DIARRHOEA [None]
